FAERS Safety Report 25949513 (Version 1)
Quarter: 2025Q4

REPORT INFORMATION
  Report Type: Spontaneous
  Country: US (occurrence: None)
  Receive Date: 20251022
  Receipt Date: 20251022
  Transmission Date: 20260118
  Serious: Yes (Disabling, Other)
  Sender: FDA-CTU
  Company Number: None

PATIENT
  Age: 37 Year
  Sex: Female
  Weight: 106.2 kg

DRUGS (22)
  1. XYZAL [Suspect]
     Active Substance: LEVOCETIRIZINE DIHYDROCHLORIDE
     Indication: Vertigo
     Dosage: OTHER QUANTITY : 1 TABLET(S);?FREQUENCY : AT BEDTIME;?
     Route: 048
  2. XYZAL [Suspect]
     Active Substance: LEVOCETIRIZINE DIHYDROCHLORIDE
     Indication: Dizziness
  3. XYZAL [Suspect]
     Active Substance: LEVOCETIRIZINE DIHYDROCHLORIDE
     Indication: Hypersensitivity
  4. Blood pressure machine-home [Concomitant]
  5. FLONASE [Concomitant]
     Active Substance: FLUTICASONE PROPIONATE
  6. MECLIZINE [Concomitant]
     Active Substance: MECLIZINE HYDROCHLORIDE
  7. VITAMINS [Concomitant]
     Active Substance: VITAMINS
  8. vita d tab [Concomitant]
  9. AMMONIUM LACTATE [Concomitant]
     Active Substance: AMMONIUM LACTATE
  10. LATANOPROST [Concomitant]
     Active Substance: LATANOPROST
  11. TYLENOL [Concomitant]
     Active Substance: ACETAMINOPHEN
  12. LEVOTHYROXINE [Concomitant]
     Active Substance: LEVOTHYROXINE
  13. LEVOCETIRIZINE [Concomitant]
     Active Substance: LEVOCETIRIZINE
  14. CABERGOLINE [Concomitant]
     Active Substance: CABERGOLINE
  15. SODIUM FLUORIDE [Concomitant]
     Active Substance: SODIUM FLUORIDE
  16. ASPIRIN [Concomitant]
     Active Substance: ASPIRIN
  17. QUETIAPINE [Concomitant]
     Active Substance: QUETIAPINE
  18. SIMVASTATIN [Concomitant]
     Active Substance: SIMVASTATIN
  19. FAMOTIDINE [Concomitant]
     Active Substance: FAMOTIDINE
  20. KETOCONAZOLE [Concomitant]
     Active Substance: KETOCONAZOLE
  21. METOPROLOL SUCCINATE [Concomitant]
     Active Substance: METOPROLOL SUCCINATE
  22. levalbuterol hfa [Concomitant]

REACTIONS (3)
  - Intentional product use issue [None]
  - Dizziness [None]
  - Vertigo [None]
